FAERS Safety Report 23408819 (Version 3)
Quarter: 2024Q1

REPORT INFORMATION
  Report Type: Spontaneous
  Country: CY (occurrence: CY)
  Receive Date: 20240117
  Receipt Date: 20240202
  Transmission Date: 20240410
  Serious: Yes (Death, Disabling)
  Sender: FDA-Public Use
  Company Number: None

PATIENT
  Age: 76 Year
  Sex: Female

DRUGS (5)
  1. HALDOL [Suspect]
     Active Substance: HALOPERIDOL
     Indication: Product used for unknown indication
     Route: 065
     Dates: start: 20230830, end: 202310
  2. HALDOL [Suspect]
     Active Substance: HALOPERIDOL
     Route: 065
     Dates: start: 20230829
  3. OZEMPIC [Concomitant]
     Active Substance: SEMAGLUTIDE
  4. INSULIN NOS [Concomitant]
     Active Substance: INSULIN NOS
  5. CRESTOR [Concomitant]
     Active Substance: ROSUVASTATIN CALCIUM

REACTIONS (5)
  - Cardiac arrest [Fatal]
  - Gait disturbance [Fatal]
  - Muscle rigidity [Fatal]
  - Parkinsonism [Not Recovered/Not Resolved]
  - Confusional state [Not Recovered/Not Resolved]

NARRATIVE: CASE EVENT DATE: 20230829
